FAERS Safety Report 8545002-9 (Version None)
Quarter: 2012Q3

REPORT INFORMATION
  Report Type: 
  Country: None (occurrence: None)
  Receive Date: 20120727
  Receipt Date: 20120720
  Transmission Date: 20120928
  Serious: Yes (Hospitalization)
  Sender: FDA-Public Use
  Company Number: GR-GLAXOSMITHKLINE-B0808959A

PATIENT
  Sex: Male
  Weight: 75 kg

DRUGS (5)
  1. KEPPRA [Concomitant]
     Indication: PROPHYLAXIS
     Dates: start: 20120524, end: 20120703
  2. DEXAMETHASONE [Concomitant]
     Indication: METASTASES TO CENTRAL NERVOUS SYSTEM
     Dosage: 10CC TWICE PER DAY
     Dates: start: 20120524, end: 20120624
  3. NEBIVOLOL HCL [Concomitant]
     Indication: HYPERTENSION
     Dosage: 2.5MG PER DAY
  4. LAPATINIB [Suspect]
     Indication: METASTASES TO CENTRAL NERVOUS SYSTEM
     Dosage: 1250MG PER DAY
     Route: 048
     Dates: start: 20120528, end: 20120606
  5. OMEPRAZOLE (PRISOLEC) [Concomitant]
     Indication: PROPHYLAXIS
     Dosage: 20MG PER DAY
     Dates: start: 20120524, end: 20120703

REACTIONS (2)
  - LUNG INFECTION [None]
  - EMPYEMA [None]
